FAERS Safety Report 9062385 (Version 1)
Quarter: 2013Q1

REPORT INFORMATION
  Report Type: Spontaneous
  Country: JP (occurrence: JP)
  Receive Date: 20130213
  Receipt Date: 20130213
  Transmission Date: 20140127
  Serious: Yes (Hospitalization)
  Sender: FDA-Public Use
  Company Number: JP-GLAXOSMITHKLINE-B0865339A

PATIENT
  Age: 31 Year
  Sex: Male

DRUGS (15)
  1. LAMICTAL [Suspect]
     Indication: PRODUCT USED FOR UNKNOWN INDICATION
     Route: 048
  2. LAMICTAL [Suspect]
     Indication: PRODUCT USED FOR UNKNOWN INDICATION
     Dosage: 1000MG PER DAY
     Route: 048
  3. FLUNITRAZEPAM [Suspect]
     Route: 048
  4. FLUNITRAZEPAM [Suspect]
     Dosage: 30MG PER DAY
     Route: 048
  5. FLUNITRAZEPAM [Suspect]
     Dosage: 1MG PER DAY
     Route: 048
  6. DIAZEPAM [Suspect]
     Route: 048
  7. DIAZEPAM [Suspect]
     Dosage: 100MG PER DAY
     Route: 048
  8. DIAZEPAM [Suspect]
     Dosage: 4MG PER DAY
     Route: 048
  9. DIAZEPAM [Suspect]
     Dosage: 6MG PER DAY
     Route: 048
  10. NITRAZEPAM [Suspect]
     Route: 048
  11. NITRAZEPAM [Suspect]
     Dosage: 200MG PER DAY
     Route: 048
  12. UNKNOWN DRUG [Suspect]
     Route: 065
  13. UNKNOWN DRUG [Suspect]
     Route: 042
  14. UNKNOWN DRUG [Suspect]
     Route: 042
  15. UNKNOWN DRUG [Suspect]
     Route: 065

REACTIONS (31)
  - Rhabdomyolysis [Recovered/Resolved]
  - Overdose [Unknown]
  - Rash pruritic [Unknown]
  - Depressed level of consciousness [Unknown]
  - Abnormal behaviour [Unknown]
  - Pneumonia aspiration [Unknown]
  - Blood creatine phosphokinase increased [Unknown]
  - Persecutory delusion [Unknown]
  - Hallucination [Unknown]
  - Restlessness [Unknown]
  - Agitation [Unknown]
  - Substance-induced psychotic disorder [Unknown]
  - Delirium [Unknown]
  - Acute psychosis [Unknown]
  - Depressed mood [Unknown]
  - Anxiety [Unknown]
  - Insomnia [Unknown]
  - Myoglobin blood [Unknown]
  - Aspartate aminotransferase abnormal [Unknown]
  - Alanine aminotransferase abnormal [Unknown]
  - Blood lactate dehydrogenase [Unknown]
  - Drug eruption [Unknown]
  - Butterfly rash [Unknown]
  - Erythema [Unknown]
  - Pruritus [Unknown]
  - Stress [Unknown]
  - Regressive behaviour [Unknown]
  - Dissociative disorder [Unknown]
  - Pyrexia [Unknown]
  - Altered state of consciousness [Unknown]
  - Rash [Recovered/Resolved]
